FAERS Safety Report 17191625 (Version 2)
Quarter: 2019Q4

REPORT INFORMATION
  Report Type: Spontaneous
  Country: US (occurrence: US)
  Receive Date: 20191223
  Receipt Date: 20191230
  Transmission Date: 20200122
  Serious: Yes (Hospitalization)
  Sender: FDA-Public Use
  Company Number: US-PFIZER INC-2019153321

PATIENT
  Age: 52 Year
  Sex: Male
  Weight: 181.4 kg

DRUGS (3)
  1. LYRICA [Suspect]
     Active Substance: PREGABALIN
     Indication: CRANIAL NERVE PARALYSIS
  2. LYRICA [Suspect]
     Active Substance: PREGABALIN
     Indication: INTERVERTEBRAL DISC DISORDER
     Dosage: 225 MG, 2X/DAY (TAKE 3 CAPSULES BY MOUTH 2 TIMES DAILY)
     Route: 048
     Dates: start: 20190329
  3. LYRICA [Suspect]
     Active Substance: PREGABALIN
     Indication: HEADACHE
     Dosage: UNK
     Route: 048
     Dates: start: 201801

REACTIONS (10)
  - Fall [Unknown]
  - Eyelid ptosis [Unknown]
  - Intentional product misuse [Unknown]
  - Vision blurred [Unknown]
  - Pre-existing condition improved [Unknown]
  - Condition aggravated [Unknown]
  - Therapeutic response unexpected [Unknown]
  - Dizziness [Unknown]
  - Pharyngeal swelling [Unknown]
  - Choking sensation [Unknown]

NARRATIVE: CASE EVENT DATE: 2019
